FAERS Safety Report 8287001-0 (Version None)
Quarter: 2012Q2

REPORT INFORMATION
  Report Type: 
  Country: None (occurrence: None)
  Receive Date: 20120416
  Receipt Date: 20120406
  Transmission Date: 20120825
  Serious: Yes (Other)
  Sender: FDA-Public Use
  Company Number: US-ASTRAZENECA-2011SE76844

PATIENT
  Age: 81 Year
  Sex: Female
  Weight: 117.5 kg

DRUGS (2)
  1. TOPROL-XL [Suspect]
     Indication: CORONARY ARTERY DISEASE
     Route: 048
  2. TOPROL-XL [Suspect]
     Indication: HYPERTENSION
     Route: 048

REACTIONS (2)
  - NEOPLASM MALIGNANT [None]
  - PAIN IN EXTREMITY [None]
